FAERS Safety Report 12450369 (Version 1)
Quarter: 2016Q2

REPORT INFORMATION
  Report Type: Other
  Country: IE (occurrence: IE)
  Receive Date: 20160609
  Receipt Date: 20160609
  Transmission Date: 20160815
  Serious: Yes (Death)
  Sender: FDA-Public Use
  Company Number: IE-ACTELION-A-CH2016-137111

PATIENT
  Age: 11 Week
  Sex: Male

DRUGS (3)
  1. TRACLEER [Suspect]
     Active Substance: BOSENTAN
     Indication: PULMONARY HYPERTENSION
     Route: 048
  2. NITRIC OXIDE. [Concomitant]
     Active Substance: NITRIC OXIDE
  3. SILDENAFIL. [Concomitant]
     Active Substance: SILDENAFIL

REACTIONS (13)
  - Pulmonary mass [Fatal]
  - Hypercapnia [Not Recovered/Not Resolved]
  - Hypoxia [Fatal]
  - Pulmonary hypertension [Fatal]
  - Pulmonary capillary haemangiomatosis [Fatal]
  - Obstructive airways disorder [Not Recovered/Not Resolved]
  - Drug ineffective [Not Recovered/Not Resolved]
  - Computerised tomogram thorax abnormal [Fatal]
  - Lung disorder [Fatal]
  - Pulmonary arterial hypertension [Fatal]
  - Respiratory acidosis [Fatal]
  - Atelectasis neonatal [Fatal]
  - Pleural effusion [Fatal]
